FAERS Safety Report 25912606 (Version 1)
Quarter: 2025Q4

REPORT INFORMATION
  Report Type: Spontaneous
  Country: CA (occurrence: CA)
  Receive Date: 20251013
  Receipt Date: 20251013
  Transmission Date: 20260118
  Serious: Yes (Other)
  Sender: CELLTRION
  Company Number: CA-CELLTRION INC.-2025CA036469

PATIENT

DRUGS (22)
  1. INFLIXIMAB [Suspect]
     Active Substance: INFLIXIMAB
     Indication: Crohn^s disease
     Dosage: 700 MILLIGRAM
     Route: 042
  2. INFLIXIMAB [Suspect]
     Active Substance: INFLIXIMAB
     Dosage: 700 MILLIGRAM
     Route: 042
  3. INFLIXIMAB [Suspect]
     Active Substance: INFLIXIMAB
     Dosage: 700 MILLIGRAM
     Route: 042
  4. INFLIXIMAB [Suspect]
     Active Substance: INFLIXIMAB
     Dosage: 400 MILLIGRAM
     Route: 042
  5. INFLIXIMAB [Suspect]
     Active Substance: INFLIXIMAB
     Dosage: 500 MILLIGRAM
     Route: 042
  6. INFLIXIMAB [Suspect]
     Active Substance: INFLIXIMAB
     Dosage: 500 MILLIGRAM
     Route: 042
  7. INFLIXIMAB [Suspect]
     Active Substance: INFLIXIMAB
     Dosage: 500 MILLIGRAM
     Route: 042
  8. INFLIXIMAB [Suspect]
     Active Substance: INFLIXIMAB
     Dosage: 500 MILLIGRAM
     Route: 042
  9. INFLIXIMAB [Suspect]
     Active Substance: INFLIXIMAB
     Dosage: 700 MILLIGRAM
     Route: 042
  10. INFLIXIMAB [Suspect]
     Active Substance: INFLIXIMAB
     Dosage: 400 MILLIGRAM
     Route: 042
  11. INFLIXIMAB [Suspect]
     Active Substance: INFLIXIMAB
     Dosage: 700 MILLIGRAM
     Route: 042
  12. ACETAMINOPHEN [Concomitant]
     Active Substance: ACETAMINOPHEN
     Indication: Premedication
     Dosage: 650 MILLIGRAM
  13. ATIVAN [Concomitant]
     Active Substance: LORAZEPAM
     Indication: Premedication
     Dosage: 1 MILLIGRAM
  14. DIMENHYDRINATE [Concomitant]
     Active Substance: DIMENHYDRINATE
     Indication: Premedication
     Dosage: 50 MILLIGRAM
  15. DIPHENHYDRAMINE [Concomitant]
     Active Substance: DIPHENHYDRAMINE
     Indication: Premedication
     Dosage: 50 MILLIGRAM
  16. DUPIXENT [Concomitant]
     Active Substance: DUPILUMAB
     Indication: Hypereosinophilic syndrome
     Dosage: UNK
  17. DUPIXENT [Concomitant]
     Active Substance: DUPILUMAB
     Indication: Chronic spontaneous urticaria
     Dosage: UNK
  18. DUPIXENT [Concomitant]
     Active Substance: DUPILUMAB
     Indication: Asthma
  19. DUPIXENT [Concomitant]
     Active Substance: DUPILUMAB
     Indication: Hypereosinophilic syndrome
  20. DUPIXENT [Concomitant]
     Active Substance: DUPILUMAB
     Indication: Chronic spontaneous urticaria
  21. DUPIXENT [Concomitant]
     Active Substance: DUPILUMAB
     Indication: Asthma
  22. PREDNISONE [Concomitant]
     Active Substance: PREDNISONE

REACTIONS (15)
  - Anxiety [Recovered/Resolved]
  - Blood pressure decreased [Recovered/Resolved]
  - Blood pressure diastolic decreased [Recovered/Resolved]
  - Cartilage injury [Recovered/Resolved]
  - Cold sweat [Recovered/Resolved]
  - Condition aggravated [Recovered/Resolved]
  - Gallbladder disorder [Recovered/Resolved]
  - Periorbital swelling [Recovered/Resolved]
  - Post-traumatic stress disorder [Recovered/Resolved]
  - Uterine dilation and curettage [Recovered/Resolved]
  - Butterfly rash [Recovered/Resolved]
  - Dizziness [Recovered/Resolved]
  - Flushing [Recovered/Resolved]
  - Nausea [Recovered/Resolved]
  - Off label use [Recovered/Resolved]
